FAERS Safety Report 10855137 (Version 2)
Quarter: 2015Q3

REPORT INFORMATION
  Report Type: Report from Study
  Country: JP (occurrence: None)
  Receive Date: 20150218
  Receipt Date: 20150819
  Transmission Date: 20151125
  Serious: Yes (Other)
  Sender: FDA-Public Use
  Company Number: 2010JP002785

PATIENT
  Age: 41 Year
  Sex: Female
  Weight: 50 kg

DRUGS (8)
  1. PROGRAF [Suspect]
     Active Substance: TACROLIMUS\TACROLIMUS ANHYDROUS
     Indication: LUPUS NEPHRITIS
     Route: 048
     Dates: start: 20071204, end: 20080114
  2. PARIET [Concomitant]
     Active Substance: RABEPRAZOLE SODIUM
  3. BLOPRESS [Concomitant]
     Active Substance: CANDESARTAN CILEXETIL
  4. PREDNISOLONE. [Concomitant]
     Active Substance: PREDNISOLONE
  5. ACTONEL [Concomitant]
     Active Substance: RISEDRONATE SODIUM
  6. PERSANTIN [Concomitant]
     Active Substance: DIPYRIDAMOLE
  7. TAKEPRON [Concomitant]
     Active Substance: LANSOPRAZOLE
  8. FLAVITAN (FLAVINE ADENINE DINUCLEOTIDE) [Concomitant]

REACTIONS (3)
  - Sjogren^s syndrome [None]
  - Dysgeusia [None]
  - Glossitis [None]

NARRATIVE: CASE EVENT DATE: 20090705
